FAERS Safety Report 22048172 (Version 1)
Quarter: 2023Q1

REPORT INFORMATION
  Report Type: Spontaneous
  Country: US (occurrence: US)
  Receive Date: 20230301
  Receipt Date: 20230301
  Transmission Date: 20230418
  Serious: No
  Sender: FDA-Public Use
  Company Number: US-009507513-2302USA005591

PATIENT
  Sex: Female

DRUGS (2)
  1. JANUVIA [Suspect]
     Active Substance: SITAGLIPTIN PHOSPHATE
     Indication: Glycosylated haemoglobin increased
     Route: 048
  2. PIOGLITAZONE [Suspect]
     Active Substance: PIOGLITAZONE
     Dosage: 15 MILLIGRAM

REACTIONS (1)
  - Vomiting [Unknown]
